FAERS Safety Report 25917538 (Version 2)
Quarter: 2025Q4

REPORT INFORMATION
  Report Type: Spontaneous
  Country: US (occurrence: US)
  Receive Date: 20251014
  Receipt Date: 20251111
  Transmission Date: 20260117
  Serious: No
  Sender: ROCHE
  Company Number: US-ROCHE-10000405164

PATIENT
  Sex: Female

DRUGS (1)
  1. VABYSMO [Suspect]
     Active Substance: FARICIMAB-SVOA
     Indication: Eye swelling
     Dosage: IN LEFT EYE ONLY; FREQUENCY EVERY 11 OR 12 WEEKS
     Route: 050

REACTIONS (4)
  - Lower limb fracture [Not Recovered/Not Resolved]
  - Malaise [Unknown]
  - Fall [Unknown]
  - Off label use [Unknown]

NARRATIVE: CASE EVENT DATE: 20250601
